FAERS Safety Report 6398801-6 (Version None)
Quarter: 2009Q4

REPORT INFORMATION
  Report Type: 
  Country: None (occurrence: None)
  Receive Date: 20091013
  Receipt Date: 20091007
  Transmission Date: 20100525
  Serious: Yes (Hospitalization)
  Sender: FDA-Public Use
  Company Number: US-SANOFI-SYNTHELABO-A03200904293

PATIENT
  Sex: Female

DRUGS (7)
  1. ASPIRIN [Suspect]
     Indication: DRUG USE FOR UNKNOWN INDICATION
     Route: 065
  2. LEVOTHYROXINE [Concomitant]
     Indication: DRUG USE FOR UNKNOWN INDICATION
     Dosage: UNK
     Route: 065
  3. NORVASC [Concomitant]
     Indication: DRUG USE FOR UNKNOWN INDICATION
     Dosage: UNK
     Route: 065
     Dates: start: 20080101
  4. ZOCOR [Concomitant]
     Indication: DRUG USE FOR UNKNOWN INDICATION
     Dosage: UNK
     Route: 065
  5. LOPRESSOR [Concomitant]
     Indication: DRUG USE FOR UNKNOWN INDICATION
     Dosage: UNK
     Route: 065
  6. PLAVIX [Interacting]
     Indication: STENT PLACEMENT
     Route: 048
     Dates: start: 20070301
  7. PROTONIX [Interacting]
     Indication: GASTRIC ULCER
     Dosage: UNK
     Route: 065

REACTIONS (7)
  - ANXIETY [None]
  - DECREASED APPETITE [None]
  - DRUG INTERACTION [None]
  - DYSPEPSIA [None]
  - GASTRIC ULCER [None]
  - MECHANICAL URTICARIA [None]
  - WEIGHT DECREASED [None]
